FAERS Safety Report 8205044-X (Version None)
Quarter: 2012Q1

REPORT INFORMATION
  Report Type: 
  Country: None (occurrence: None)
  Receive Date: 20120313
  Receipt Date: 20120228
  Transmission Date: 20120608
  Serious: Yes (Other)
  Sender: FDA-Public Use
  Company Number: US-GLAXOSMITHKLINE-A0968099A

PATIENT
  Age: 46 Year
  Sex: Female

DRUGS (2)
  1. ANTIBIOTICS [Concomitant]
     Indication: KIDNEY INFECTION
  2. ALLI [Suspect]
     Indication: PRODUCT USED FOR UNKNOWN INDICATION
     Route: 048

REACTIONS (6)
  - HEADACHE [None]
  - NEPHROLITHIASIS [None]
  - BLOOD URINE PRESENT [None]
  - KIDNEY INFECTION [None]
  - MALAISE [None]
  - BACK PAIN [None]
